FAERS Safety Report 25019242 (Version 1)
Quarter: 2025Q1

REPORT INFORMATION
  Report Type: Report from Study
  Country: CA (occurrence: CA)
  Receive Date: 20250227
  Receipt Date: 20250227
  Transmission Date: 20250409
  Serious: Yes (Other)
  Sender: ALEXION PHARMACEUTICALS
  Company Number: CA-AstraZeneca-CH-00812873A

PATIENT
  Age: 22 Year

DRUGS (18)
  1. ANIFROLUMAB [Suspect]
     Active Substance: ANIFROLUMAB
     Indication: Autoantibody positive
  2. ANIFROLUMAB [Suspect]
     Active Substance: ANIFROLUMAB
     Indication: Systemic lupus erythematosus
  3. HYDROXYCHLOROQUINE [Concomitant]
     Active Substance: HYDROXYCHLOROQUINE
  4. METHOTREXATE [Concomitant]
     Active Substance: METHOTREXATE
  5. FOLIC ACID [Concomitant]
     Active Substance: FOLIC ACID
  6. PREDNISONE [Concomitant]
     Active Substance: PREDNISONE
  7. Sulphatrim [Concomitant]
  8. CANDESARTAN [Concomitant]
     Active Substance: CANDESARTAN
  9. GABAPENTIN [Concomitant]
     Active Substance: GABAPENTIN
  10. PANTOPRAZOLE [Concomitant]
     Active Substance: PANTOPRAZOLE
  11. DESVENLAFAXINE [Concomitant]
     Active Substance: DESVENLAFAXINE
  12. MONTELUKAST [Concomitant]
     Active Substance: MONTELUKAST
  13. QUETIAPINE [Concomitant]
     Active Substance: QUETIAPINE
  14. ZOPICLONE [Concomitant]
     Active Substance: ZOPICLONE
  15. LAMOTRIGINE [Concomitant]
     Active Substance: LAMOTRIGINE
  16. CETIRIZINE [Concomitant]
     Active Substance: CETIRIZINE HYDROCHLORIDE
  17. METOCLOPRAMIDE [Concomitant]
     Active Substance: METOCLOPRAMIDE
  18. TYLENOL [Concomitant]
     Active Substance: ACETAMINOPHEN

REACTIONS (1)
  - Arrhythmia [Recovered/Resolved]
